FAERS Safety Report 9729949 (Version 2)
Quarter: 2014Q1

REPORT INFORMATION
  Report Type: Spontaneous
  Country: RO (occurrence: RO)
  Receive Date: 20131204
  Receipt Date: 20140127
  Transmission Date: 20141002
  Serious: Yes (Death)
  Sender: FDA-Public Use
  Company Number: RO-PFIZER INC-2013346345

PATIENT
  Age: 52 Year
  Sex: Male
  Weight: 120 kg

DRUGS (6)
  1. BISOPROLOL FUMARATE [Suspect]
     Dosage: 5 MG, UNK
     Route: 065
  2. PERINDOPRIL [Suspect]
     Dosage: 5 MG, UNK
     Route: 065
  3. AMLODIPINE BESILATE [Suspect]
     Dosage: 5 MG, UNK
     Route: 065
  4. ATORVASTATIN CALCIUM [Suspect]
     Dosage: 10 MG, UNK
     Route: 065
  5. ASPIRIN [Suspect]
     Dosage: 100 MG, UNK
     Route: 065
  6. PROPAFENONE [Suspect]
     Dosage: 2 CP/DAY
     Route: 065

REACTIONS (1)
  - Sudden cardiac death [Fatal]
